FAERS Safety Report 8856908 (Version 1)
Quarter: 2012Q4

REPORT INFORMATION
  Report Type: Spontaneous
  Country: US (occurrence: None)
  Receive Date: 20121023
  Receipt Date: 20121023
  Transmission Date: 20130627
  Serious: Yes (Other)
  Sender: FDA-Public Use
  Company Number: None

PATIENT
  Age: 52 Year
  Sex: Female
  Weight: 93.9 kg

DRUGS (1)
  1. TIZANIDINE [Suspect]
     Route: 048
     Dates: start: 20121012, end: 20121021

REACTIONS (2)
  - Somnambulism [None]
  - Abnormal behaviour [None]
